FAERS Safety Report 14646729 (Version 41)
Quarter: 2023Q1

REPORT INFORMATION
  Report Type: Report from Study
  Country: CA (occurrence: CA)
  Receive Date: 20180316
  Receipt Date: 20230307
  Transmission Date: 20230417
  Serious: Yes (Other)
  Sender: FDA-Public Use
  Company Number: PHHY2014CA045336

PATIENT
  Age: 65 Year
  Sex: Female

DRUGS (11)
  1. SANDOSTATIN LAR DEPOT [Suspect]
     Active Substance: OCTREOTIDE ACETATE
     Indication: Carcinoid tumour
     Dosage: 30 MG, QMO
     Route: 030
     Dates: start: 20120830
  2. SANDOSTATIN LAR DEPOT [Suspect]
     Active Substance: OCTREOTIDE ACETATE
     Dosage: 30 MG, QMO
     Route: 030
  3. SANDOSTATIN LAR DEPOT [Suspect]
     Active Substance: OCTREOTIDE ACETATE
     Dosage: 30 MG, QMO
     Route: 030
     Dates: start: 20140709
  4. SANDOSTATIN LAR DEPOT [Suspect]
     Active Substance: OCTREOTIDE ACETATE
     Dosage: UNK
     Route: 030
     Dates: start: 20170628
  5. SANDOSTATIN LAR DEPOT [Suspect]
     Active Substance: OCTREOTIDE ACETATE
     Dosage: UNK
     Route: 030
     Dates: start: 20180201
  6. CODEINE PHOSPHATE [Suspect]
     Active Substance: CODEINE PHOSPHATE
     Indication: Product used for unknown indication
     Dosage: UNK
     Route: 065
  7. CLARITHROMYCIN [Concomitant]
     Active Substance: CLARITHROMYCIN
     Indication: Product used for unknown indication
     Dosage: UNK UNK, PRN
     Route: 065
  8. MOMETASONE [Concomitant]
     Active Substance: MOMETASONE
     Indication: Product used for unknown indication
     Dosage: UNK UNK, PRN
     Route: 065
  9. AZITHROMYCIN [Concomitant]
     Active Substance: AZITHROMYCIN
     Indication: Product used for unknown indication
     Dosage: UNK, QW (1 WEEK)
     Route: 048
     Dates: start: 2018
  10. RAMIPRIL [Concomitant]
     Active Substance: RAMIPRIL
     Indication: Hypertension
     Dosage: UNK
     Route: 065
  11. LUTATHERA [Concomitant]
     Active Substance: LUTETIUM OXODOTREOTIDE LU-177
     Indication: Product used for unknown indication
     Dosage: UNK (PRRT)
     Route: 065

REACTIONS (39)
  - Cutaneous vasculitis [Recovering/Resolving]
  - Pneumonia [Recovering/Resolving]
  - Diverticulitis [Unknown]
  - Neoplasm progression [Recovering/Resolving]
  - Spinal osteoarthritis [Recovering/Resolving]
  - Back pain [Unknown]
  - Intervertebral disc protrusion [Unknown]
  - Rhinorrhoea [Unknown]
  - Cough [Unknown]
  - Blood iron decreased [Unknown]
  - White blood cell count increased [Recovering/Resolving]
  - Blood urine present [Recovering/Resolving]
  - Skin disorder [Unknown]
  - Vasculitis [Recovered/Resolved]
  - Hordeolum [Unknown]
  - Influenza [Unknown]
  - Osteoarthritis [Unknown]
  - Exostosis [Unknown]
  - Eye inflammation [Unknown]
  - Blood pressure increased [Unknown]
  - Ocular hyperaemia [Unknown]
  - Diarrhoea [Unknown]
  - Abdominal pain [Unknown]
  - Abdominal discomfort [Unknown]
  - Fatigue [Unknown]
  - Weight bearing difficulty [Unknown]
  - Limb injury [Unknown]
  - Amnesia [Unknown]
  - Anxiety [Unknown]
  - Peripheral swelling [Unknown]
  - Blood pressure diastolic decreased [Unknown]
  - Blood pressure systolic increased [Unknown]
  - Gout [Unknown]
  - SARS-CoV-2 test positive [Unknown]
  - Memory impairment [Unknown]
  - Needle issue [Unknown]
  - COVID-19 [Recovered/Resolved]
  - Blood pressure increased [Unknown]
  - Injection site mass [Unknown]

NARRATIVE: CASE EVENT DATE: 20140216
